FAERS Safety Report 16950036 (Version 1)
Quarter: 2019Q4

REPORT INFORMATION
  Report Type: Spontaneous
  Country: ES (occurrence: ES)
  Receive Date: 20191023
  Receipt Date: 20191023
  Transmission Date: 20200122
  Serious: Yes (Hospitalization, Other)
  Sender: FDA-Public Use
  Company Number: ES-SA-2019SA290165

PATIENT
  Age: 38 Year
  Sex: Female

DRUGS (1)
  1. LEMTRADA [Suspect]
     Active Substance: ALEMTUZUMAB
     Indication: MULTIPLE SCLEROSIS
     Dosage: CONCENTRADO PARA SOLUCION PARA PERFUSION 1 VIAL DE 1,2 ML
     Route: 041
     Dates: start: 20160914, end: 20170822

REACTIONS (3)
  - Anogenital warts [Recovering/Resolving]
  - Herpes zoster meningitis [Recovered/Resolved]
  - Hypothyroidism [Not Recovered/Not Resolved]

NARRATIVE: CASE EVENT DATE: 20170321
